FAERS Safety Report 6456417-7 (Version None)
Quarter: 2009Q4

REPORT INFORMATION
  Report Type: 
  Country: None (occurrence: None)
  Receive Date: 20091125
  Receipt Date: 20091119
  Transmission Date: 20100525
  Serious: Yes (Death)
  Sender: FDA-Public Use
  Company Number: IN-PFIZER INC-2008066602

PATIENT
  Age: 28 Year
  Sex: Male
  Weight: 61 kg

DRUGS (9)
  1. IRINOTECAN HCL [Suspect]
     Indication: COLORECTAL CANCER METASTATIC
     Dosage: 180 MG/M2, 1 EVERY 15 DAYS
     Route: 042
     Dates: start: 20080528
  2. BLINDED *NO SUBJECT DRUG [Suspect]
     Indication: COLORECTAL CANCER METASTATIC
     Dosage: 37.5 MG, 1X/DAY
     Route: 048
     Dates: start: 20080528
  3. BLINDED *PLACEBO [Suspect]
     Indication: COLORECTAL CANCER METASTATIC
     Dosage: 37.5 MG, 1X/DAY
     Route: 048
     Dates: start: 20080528
  4. BLINDED SUNITINIB MALATE [Suspect]
     Indication: COLORECTAL CANCER METASTATIC
     Dosage: 37.5 MG, 1X/DAY
     Route: 048
     Dates: start: 20080528
  5. CALCIUM FOLINATE [Suspect]
     Indication: COLORECTAL CANCER METASTATIC
     Dosage: 200 MG/M2, 1 EVERY 15 DAYS
     Route: 042
     Dates: start: 20080528
  6. FLUOROURACIL [Suspect]
     Indication: COLORECTAL CANCER METASTATIC
     Dosage: 400 MG/M2, 1 EVERY 15 DAYS
     Route: 040
     Dates: start: 20080528, end: 20080730
  7. FLUOROURACIL [Suspect]
     Dosage: 2400 MG/M2, EVERY 15 DAYS, INFUSION
     Route: 042
     Dates: start: 20080528, end: 20080801
  8. CYPROHEPTADINE [Concomitant]
     Route: 048
     Dates: start: 20080528
  9. DOMPERIDONE/PANTOPRAZOLE [Concomitant]
     Route: 048
     Dates: start: 20080528

REACTIONS (1)
  - DEATH [None]
